FAERS Safety Report 8964041 (Version 3)
Quarter: 2014Q2

REPORT INFORMATION
  Report Type: Spontaneous
  Country: US (occurrence: US)
  Receive Date: 20121214
  Receipt Date: 20140509
  Transmission Date: 20141212
  Serious: Yes (Hospitalization, Other)
  Sender: FDA-Public Use
  Company Number: US-BAYER-2012-131380

PATIENT
  Age: 24 Year
  Sex: Female

DRUGS (7)
  1. BEYAZ [Suspect]
     Indication: CONTRACEPTION
  2. TESTOBAY/TESTOFLOXACIN [Concomitant]
     Indication: URINARY TRACT INFECTION
     Dosage: 200 MG, BID
     Route: 048
     Dates: start: 20090512, end: 20090515
  3. DEPO PROVERA [Concomitant]
  4. PHENERGAN [Concomitant]
  5. CARAFATE [Concomitant]
  6. NEXIUM [Concomitant]
  7. NAPRELAN [Concomitant]

REACTIONS (3)
  - Gastrointestinal disorder [None]
  - Cholecystitis [None]
  - Injury [None]
